FAERS Safety Report 15751253 (Version 1)
Quarter: 2018Q4

REPORT INFORMATION
  Report Type: Report from Study
  Country: IN (occurrence: IN)
  Receive Date: 20181221
  Receipt Date: 20181221
  Transmission Date: 20190205
  Serious: Yes (Death, Other)
  Sender: FDA-Public Use
  Company Number: IN-VIIV HEALTHCARE LIMITED-IN2018GSK230006

PATIENT
  Age: 11 Year
  Sex: Male

DRUGS (3)
  1. NEVIRAPINE. [Suspect]
     Active Substance: NEVIRAPINE
     Indication: HIV INFECTION
  2. ZIDOVUDINE. [Suspect]
     Active Substance: ZIDOVUDINE
     Indication: HIV INFECTION
  3. LAMIVUDINE. [Suspect]
     Active Substance: LAMIVUDINE
     Indication: HIV INFECTION

REACTIONS (15)
  - Fungal sepsis [Fatal]
  - Lymphadenopathy [Unknown]
  - Proteinuria [Unknown]
  - Oedema peripheral [Unknown]
  - Mitral valve incompetence [Unknown]
  - Hypertrophy [Unknown]
  - Drug ineffective [Unknown]
  - Polyarteritis nodosa [Unknown]
  - Hypokinesia [Unknown]
  - Hypertensive cardiomyopathy [Unknown]
  - Renal infarct [Unknown]
  - Abdominal pain [Unknown]
  - Pallor [Unknown]
  - Pulmonary arterial hypertension [Unknown]
  - Respiratory distress [Unknown]
